FAERS Safety Report 4292002-3 (Version None)
Quarter: 2004Q1

REPORT INFORMATION
  Report Type: 
  Country: None (occurrence: None)
  Receive Date: 20040210
  Receipt Date: 20040210
  Transmission Date: 20041129
  Serious: Yes (Life-Threatening, Hospitalization)
  Sender: FDA-Public Use
  Company Number: None

PATIENT
  Age: 37 Year
  Sex: Female

DRUGS (3)
  1. LEVAQUIN [Suspect]
     Indication: DIABETES MELLITUS INSULIN-DEPENDENT
     Dosage: 500 MG QD IV
     Route: 042
     Dates: start: 20040129, end: 20040205
  2. LEVAQUIN [Suspect]
     Indication: PYELONEPHRITIS
     Dosage: 500 MG QD IV
     Route: 042
     Dates: start: 20040129, end: 20040205
  3. REGULAR INSULIN SLIDING SCALE [Concomitant]

REACTIONS (2)
  - CONVULSION [None]
  - HYPOGLYCAEMIA [None]
